FAERS Safety Report 8567739 (Version 5)
Quarter: 2013Q1

REPORT INFORMATION
  Report Type: Spontaneous
  Country: US (occurrence: US)
  Receive Date: 20120517
  Receipt Date: 20130320
  Transmission Date: 20140127
  Serious: Yes (Death, Other)
  Sender: FDA-Public Use
  Company Number: US-ELI_LILLY_AND_COMPANY-US201106001589

PATIENT
  Sex: Female

DRUGS (20)
  1. FORTEO [Suspect]
     Indication: LOWER LIMB FRACTURE
     Dosage: 20 UG, QD
     Route: 065
     Dates: start: 20110505
  2. FORTEO [Suspect]
     Dosage: 20 UG, QD
     Route: 065
  3. FORTEO [Suspect]
     Dosage: 20 UG, QD
     Route: 065
  4. FORTEO [Suspect]
     Dosage: 20 UG, QD
     Route: 065
  5. FORTEO [Suspect]
     Dosage: 20 UG, QD
     Route: 065
  6. FORTEO [Suspect]
     Dosage: 20 UG, QD
     Route: 065
     Dates: end: 201205
  7. FORTEO [Suspect]
     Dosage: 20 UG, QD
     Route: 065
  8. CALCIUM [Concomitant]
  9. METHOTREXATE [Concomitant]
     Indication: RHEUMATOID ARTHRITIS
     Dosage: 9 DF, WEEKLY (1/W)
  10. REMICADE [Concomitant]
     Indication: RHEUMATOID ARTHRITIS
     Dosage: UNK, 2/M
     Route: 042
  11. SYNTHROID [Concomitant]
  12. METOPROLOL [Concomitant]
  13. PEPCID [Concomitant]
  14. PLAVIX [Concomitant]
  15. TRICOR [Concomitant]
  16. LIPITOR [Concomitant]
  17. CLARITIN [Concomitant]
  18. ASPIRIN [Concomitant]
     Dosage: 1 DF, UNK
  19. VITAMIN D [Concomitant]
     Dosage: 3000 U, QD
  20. IRON [Concomitant]

REACTIONS (10)
  - Death [Fatal]
  - Bone disorder [Unknown]
  - Heart rate increased [Not Recovered/Not Resolved]
  - Heart rate increased [Recovered/Resolved]
  - Dizziness postural [Unknown]
  - Blood calcium increased [Recovering/Resolving]
  - Muscle spasms [Recovered/Resolved]
  - Off label use [Not Recovered/Not Resolved]
  - Carotid artery occlusion [Unknown]
  - Coronary artery occlusion [Unknown]
